FAERS Safety Report 19200386 (Version 2)
Quarter: 2021Q2

REPORT INFORMATION
  Report Type: Spontaneous
  Country: US (occurrence: US)
  Receive Date: 20210430
  Receipt Date: 20210504
  Transmission Date: 20210717
  Serious: No
  Sender: FDA-Public Use
  Company Number: NVSC2021US093029

PATIENT
  Age: 54 Year
  Sex: Female
  Weight: 48.9 kg

DRUGS (1)
  1. ZOFRAN [Suspect]
     Active Substance: ONDANSETRON HYDROCHLORIDE
     Indication: IRRITABLE BOWEL SYNDROME
     Dosage: 8 MG ( 1 TABLET, IF NEEDED) TOOK  ONE THIS MORNING
     Route: 048

REACTIONS (10)
  - Chills [Unknown]
  - Head discomfort [Unknown]
  - Asthenia [Unknown]
  - Fatigue [Unknown]
  - Dysgeusia [Unknown]
  - Nausea [Not Recovered/Not Resolved]
  - Injection site pain [Not Recovered/Not Resolved]
  - Product use in unapproved indication [Not Recovered/Not Resolved]
  - Feeling abnormal [Unknown]
  - Slow speech [Unknown]

NARRATIVE: CASE EVENT DATE: 20210403
